FAERS Safety Report 26176891 (Version 1)
Quarter: 2025Q4

REPORT INFORMATION
  Report Type: Spontaneous
  Country: EU (occurrence: EU)
  Receive Date: 20251218
  Receipt Date: 20251218
  Transmission Date: 20260119
  Serious: Yes (Other)
  Sender: NOVARTIS
  Company Number: None

PATIENT
  Age: 39 Year
  Sex: Female
  Weight: 76.8 kg

DRUGS (1)
  1. RIBOCICLIB [Suspect]
     Active Substance: RIBOCICLIB
     Indication: Breast cancer
     Dosage: 600 MG (THERAPY ONGOING)
     Route: 048
     Dates: start: 20210301

REACTIONS (2)
  - Cough [Unknown]
  - Lymphoedema [Unknown]
